FAERS Safety Report 10350533 (Version 3)
Quarter: 2014Q3

REPORT INFORMATION
  Report Type: Report from Study
  Country: DE (occurrence: DE)
  Receive Date: 20140730
  Receipt Date: 20140819
  Transmission Date: 20150326
  Serious: Yes (Other)
  Sender: FDA-Public Use
  Company Number: DE-PFIZER INC-2014208175

PATIENT
  Age: 23 Year
  Sex: Male
  Weight: 180 kg

DRUGS (15)
  1. SOMAVERT [Suspect]
     Active Substance: PEGVISOMANT
     Indication: ACROMEGALY
     Dosage: 30 MG, 1X/DAY (7 INJECTIONS PER WEEK)
     Dates: start: 20120614, end: 20140404
  2. LYRICA [Concomitant]
     Active Substance: PREGABALIN
     Dosage: UNK
     Route: 048
     Dates: start: 201204
  3. L-THYROXIN [Concomitant]
     Active Substance: LEVOTHYROXINE SODIUM
     Dosage: UNK
     Route: 048
     Dates: start: 20130918
  4. URSOFALK [Concomitant]
     Active Substance: URSODIOL
     Dosage: UNK
     Route: 048
     Dates: start: 2010
  5. VIGANTOLETTEN [Concomitant]
     Active Substance: CHOLECALCIFEROL
     Dosage: UNK
     Route: 048
     Dates: start: 2010
  6. PANTOPRAZOLE [Concomitant]
     Active Substance: PANTOPRAZOLE SODIUM
     Dosage: UNK
     Route: 048
     Dates: start: 201205
  7. L-THYROXIN [Concomitant]
     Active Substance: LEVOTHYROXINE SODIUM
     Indication: BLOOD THYROID STIMULATING HORMONE DECREASED
     Dosage: UNK
     Route: 048
     Dates: start: 2007
  8. OCTREOTIDE LAR [Concomitant]
     Indication: THERAPY CHANGE
     Dosage: UNK
     Dates: start: 2007
  9. CABERGOLINE. [Concomitant]
     Active Substance: CABERGOLINE
     Indication: THERAPY CHANGE
     Dosage: UNK
     Dates: start: 2007
  10. HYDROCORTISONE SODIUM SUCCINATE [Concomitant]
     Active Substance: HYDROCORTISONE SODIUM SUCCINATE
     Dosage: UNK
     Route: 048
     Dates: start: 20130621
  11. SPIRONOTHIAZID [Concomitant]
     Dosage: UNK
     Route: 048
     Dates: start: 20120614
  12. OCTREOTIDE LAR [Concomitant]
     Dosage: UNK
     Dates: start: 20130918
  13. HYDROCORTISONE SODIUM SUCCINATE [Concomitant]
     Active Substance: HYDROCORTISONE SODIUM SUCCINATE
     Indication: ADRENOCORTICOTROPIC HORMONE DEFICIENCY
     Dosage: UNK
     Route: 048
     Dates: start: 1995
  14. LYRICA [Concomitant]
     Active Substance: PREGABALIN
     Dosage: UNK
     Route: 048
     Dates: start: 20130918
  15. VALORON [Concomitant]
     Active Substance: TILIDINE HYDROCHLORIDE
     Dosage: UNK
     Route: 048
     Dates: start: 2012

REACTIONS (1)
  - Pituitary tumour benign [Not Recovered/Not Resolved]

NARRATIVE: CASE EVENT DATE: 20130918
